FAERS Safety Report 5652214-0 (Version None)
Quarter: 2008Q1

REPORT INFORMATION
  Report Type: 
  Country: None (occurrence: None)
  Receive Date: 20080304
  Receipt Date: 20080222
  Transmission Date: 20080703
  Serious: Yes (Hospitalization)
  Sender: FDA-Public Use
  Company Number: GXKR2008DE01935

PATIENT
  Age: 8 Year
  Sex: Male

DRUGS (6)
  1. DEXAMETHASONE [Suspect]
     Indication: PROPHYLAXIS OF NAUSEA AND VOMITING
     Dosage: 4 MG, ONCE/SINGLE, INTRAVENOUS
     Route: 042
  2. PROPOFOL [Concomitant]
  3. ALFENTANIL [Concomitant]
  4. DESFLURANE (DESFLURANE) [Concomitant]
  5. REMIFENTANIL (REMIFENTANIL) [Concomitant]
  6. ACETAMINOPHEN [Concomitant]

REACTIONS (7)
  - BLOOD LACTATE DEHYDROGENASE INCREASED [None]
  - BLOOD PHOSPHORUS INCREASED [None]
  - HEPATOSPLENOMEGALY [None]
  - NAUSEA [None]
  - TUMOUR LYSIS SYNDROME [None]
  - VOMITING [None]
  - WHITE BLOOD CELL COUNT DECREASED [None]
